FAERS Safety Report 6233021 (Version 2)
Quarter: 2012Q4

REPORT INFORMATION
  Report Type: Spontaneous
  Country: US (occurrence: None)
  Receive Date: 20061130
  Receipt Date: 20120508
  Transmission Date: 20130627
  Serious: Yes (Other)
  Sender: FDA-Public Use
  Company Number: 2005US000224

PATIENT
  Age: 53 Year
  Sex: Male
  Weight: 68 kg

DRUGS (13)
  1. PROTOPIC [Suspect]
     Indication: DERMATITIS ATOPIC
     Dates: start: 20031218, end: 20040323
  2. ELIDEL [Suspect]
     Indication: DERMATITIS ATOPIC
     Dosage: TOPICAL
     Route: 061
     Dates: start: 20040314, end: 20040917
  3. UNSPECIFIED INGREDIENT [Concomitant]
  4. DOXEPIN HYDROCHLORIDE [Concomitant]
  5. KLARON (SULFACETAMIDE SODIUM) [Concomitant]
  6. LIDA-MANTLE (LIDOCAINE) [Concomitant]
  7. HYDROCORTISONE (HYDROCORTISONE) [Concomitant]
  8. DICLOXACILLIN SODIUM [Concomitant]
  9. ELOCON [Concomitant]
  10. PSORCON (DIFLORASONE DIACETATE) [Concomitant]
  11. ZONALON (DOXEPIN HYDROCHLORIDE) [Concomitant]
  12. METROGEL [Concomitant]
  13. CORMAX (CLOBETASOL PROPIONATE) [Concomitant]

REACTIONS (8)
  - Peripheral T-cell lymphoma unspecified [None]
  - Staphylococcal infection [None]
  - Serratia infection [None]
  - Candidiasis [None]
  - Herpes virus infection [None]
  - Dermatitis infected [None]
  - Rash erythematous [None]
  - Skin necrosis [None]
